FAERS Safety Report 5586011-1 (Version None)
Quarter: 2008Q1

REPORT INFORMATION
  Report Type: 
  Country: None (occurrence: None)
  Receive Date: 20080104
  Receipt Date: 20060620
  Transmission Date: 20080703
  Serious: Yes (Death, Hospitalization)
  Sender: FDA-Public Use
  Company Number: 2006001255

PATIENT
  Age: 71 Year
  Sex: Male

DRUGS (1)
  1. TARCEVA [Suspect]
     Indication: BRONCHIAL CARCINOMA
     Dosage: 150 MG (150 MG, QD), ORAL
     Route: 048
     Dates: start: 20060228

REACTIONS (3)
  - NEOPLASM MALIGNANT [None]
  - THROMBOCYTOPENIC PURPURA [None]
  - VASCULITIS [None]
